FAERS Safety Report 7443683-4 (Version None)
Quarter: 2011Q2

REPORT INFORMATION
  Report Type: 
  Country: None (occurrence: None)
  Receive Date: 20110428
  Receipt Date: 20110412
  Transmission Date: 20111010
  Serious: Yes (Hospitalization, Other)
  Sender: FDA-Public Use
  Company Number: US-GENZYME-CLOF-1001488

PATIENT
  Sex: Female
  Weight: 74.8 kg

DRUGS (25)
  1. MORPHINE SULFATE [Concomitant]
     Indication: PAIN IN JAW
     Dosage: PCA
     Route: 050
     Dates: start: 20110201
  2. OXYGEN [Concomitant]
     Indication: HYPOVENTILATION
     Dosage: UNK
     Route: 055
     Dates: start: 20110201, end: 20110201
  3. RANITIDINE [Concomitant]
     Indication: DYSPEPSIA
     Dosage: 150 MG, BID
     Route: 048
     Dates: start: 20110201, end: 20110225
  4. ONDANSETRON [Concomitant]
     Indication: NAUSEA
     Dosage: 8 MG, TID
     Route: 048
     Dates: start: 20110223, end: 20110225
  5. CYTARABINE [Suspect]
     Indication: ACUTE MYELOID LEUKAEMIA
     Dosage: 70 MG, ONCE ON DAY 0
     Route: 037
     Dates: start: 20110223, end: 20110223
  6. CLINDAMYCIN [Concomitant]
     Indication: ANTIBIOTIC PROPHYLAXIS
     Dosage: 300 MG, TID
     Route: 048
     Dates: start: 20110218, end: 20110228
  7. OXYGEN [Concomitant]
     Indication: SEDATION
  8. CEPACOL [Concomitant]
     Indication: DENTAL DISORDER PROPHYLAXIS
     Dosage: 30 ML, QID; SWISH AND SPIT
     Route: 048
     Dates: start: 20110222, end: 20110303
  9. ISOPTO TEARS [Concomitant]
     Indication: PROPHYLAXIS
     Dosage: 2 DROPS TO BOTH EYES, QID
     Route: 047
     Dates: start: 20110224, end: 20110304
  10. CHLORHEXIDINE GLUCONATE [Concomitant]
     Indication: DENTAL DISORDER PROPHYLAXIS
     Dosage: 5 ML, BID SWISH AND SPIT
     Route: 048
     Dates: start: 20110218
  11. CALCIFEROL [Concomitant]
     Indication: VITAMIN SUPPLEMENTATION
     Dosage: 2000 U, QD
     Route: 048
     Dates: start: 20110202, end: 20110225
  12. SEPTRA [Concomitant]
     Indication: ANTIFUNGAL PROPHYLAXIS
     Dosage: 160 MG, ORAL ON SATURDAYS AND SUNDAYS; MAINTENANCE MEDICATION FROM HOME
     Route: 048
  13. CYTARABINE [Suspect]
     Dosage: 1870 MG (1000 MG/M2/DOSE), QDX5 ON DAYS 1-5
     Route: 042
     Dates: start: 20110224, end: 20110228
  14. CEFTAZIDIME [Concomitant]
     Indication: PYREXIA
     Dosage: 2000 MG, BID
     Route: 042
     Dates: start: 20110215, end: 20110307
  15. KETOROLAC TROMETHAMINE [Concomitant]
     Indication: PAIN
     Dosage: 30 MG, ONCE
     Route: 042
     Dates: start: 20110224, end: 20110224
  16. DEXTROSE 5% AND SODIUM CHLORIDE 0.45% IN PLASTIC CONTAINER [Concomitant]
     Indication: FLUID REPLACEMENT
     Dosage: D5 0.25 NS WITH SODIUM BICARB 8.4% IN 30 MEQ AT 230 ML/HR CONTINOUS INFUSION
     Route: 041
     Dates: start: 20110223, end: 20110225
  17. SODIUM BICARBONATE [Concomitant]
     Indication: FLUID REPLACEMENT
     Dosage: D5 0.25 NS WITH SODIUM BICARB 8.4% IN 30 MEQ AT 230 ML/HR CONTINOUS INFUSION
     Route: 041
     Dates: start: 20110223, end: 20110225
  18. PREGABALIN [Concomitant]
     Indication: NEUROPATHY PERIPHERAL
     Dosage: 100 MG, BID
     Route: 048
     Dates: start: 20110222, end: 20110228
  19. HYDROMORPHONE [Concomitant]
     Indication: PAIN
     Dosage: CONTINUOUS PCA
     Route: 041
     Dates: start: 20110215, end: 20110228
  20. CLOLAR [Suspect]
     Indication: ACUTE MYELOID LEUKAEMIA
     Dosage: 97.2 MG (52 MG/M2/DOSE), QDX5 ON DAYS 1-5
     Route: 042
     Dates: start: 20110224, end: 20110228
  21. MORPHINE SULFATE [Concomitant]
     Indication: MUCOSAL INFLAMMATION
  22. ALLOPURINOL [Concomitant]
     Indication: TUMOUR LYSIS SYNDROME
     Dosage: 300 MG, BID
     Route: 048
     Dates: start: 20110223, end: 20110303
  23. ESTRADIOL [Concomitant]
     Indication: PREMATURE MENOPAUSE
     Dosage: 2 MG, QD; MAINTENANCE MED FROM HOME
     Route: 048
  24. FLUCONAZOLE [Concomitant]
     Indication: ANTIFUNGAL PROPHYLAXIS
     Dosage: 300 MG, QD
     Route: 048
     Dates: start: 20110202, end: 20110225
  25. SCOPOLAMINE [Concomitant]
     Indication: NAUSEA
     Dosage: 1.5 MG PATCH, 2X/W (Q 72 HOURS)
     Route: 062
     Dates: start: 20110223, end: 20110304

REACTIONS (10)
  - NEUROPATHY PERIPHERAL [None]
  - PERIPHERAL SENSORY NEUROPATHY [None]
  - HYPOXIA [None]
  - SKIN EXFOLIATION [None]
  - BLOOD FIBRINOGEN DECREASED [None]
  - CAPILLARY LEAK SYNDROME [None]
  - HYPOCALCAEMIA [None]
  - HYPOKALAEMIA [None]
  - TUMOUR LYSIS SYNDROME [None]
  - NEUTROPENIC INFECTION [None]
